FAERS Safety Report 9520341 (Version 2)
Quarter: 2013Q3

REPORT INFORMATION
  Report Type: Report from Study
  Country: DE (occurrence: DE)
  Receive Date: 20130912
  Receipt Date: 20130912
  Transmission Date: 20140515
  Serious: Yes (Hospitalization)
  Sender: FDA-Public Use
  Company Number: DE-ROCHE-1249732

PATIENT
  Sex: Male
  Weight: 67 kg

DRUGS (4)
  1. RITUXIMAB [Suspect]
     Indication: CHRONIC LYMPHOCYTIC LEUKAEMIA
     Route: 042
     Dates: start: 20130326, end: 20130524
  2. RITUXIMAB [Suspect]
     Route: 042
     Dates: start: 20130626
  3. BENDAMUSTINE [Suspect]
     Indication: CHRONIC LYMPHOCYTIC LEUKAEMIA
     Route: 042
     Dates: start: 20130326, end: 20130524
  4. BENDAMUSTINE [Suspect]
     Route: 042
     Dates: start: 20130626

REACTIONS (2)
  - Epilepsy [Recovered/Resolved]
  - Leukopenia [Recovered/Resolved]
